FAERS Safety Report 11069581 (Version 1)
Quarter: 2015Q2

REPORT INFORMATION
  Report Type: Other
  Country: IT (occurrence: IT)
  Receive Date: 20150427
  Receipt Date: 20150427
  Transmission Date: 20150821
  Serious: Yes (Other)
  Sender: FDA-Public Use
  Company Number: IT-APOTEX-2015AP008233

PATIENT
  Age: 72 Year
  Sex: Female

DRUGS (2)
  1. LEVOPRAID /00314301/ [Suspect]
     Active Substance: SULPIRIDE
     Indication: GASTRITIS
     Dosage: 1 DF, DAILY
     Route: 048
     Dates: start: 20150317, end: 20150327
  2. PANTOPRAZOLE [Suspect]
     Active Substance: PANTOPRAZOLE SODIUM
     Indication: GASTRITIS
     Dosage: 1 DF, DAILY
     Route: 048
     Dates: start: 20150317, end: 20150327

REACTIONS (2)
  - Urticaria [Recovering/Resolving]
  - Hypersensitivity [Recovering/Resolving]

NARRATIVE: CASE EVENT DATE: 20150325
